FAERS Safety Report 10070646 (Version 2)
Quarter: 2014Q2

REPORT INFORMATION
  Report Type: Report from Study
  Country: US (occurrence: US)
  Receive Date: 20140410
  Receipt Date: 20140422
  Transmission Date: 20141212
  Serious: Yes (Hospitalization)
  Sender: FDA-Public Use
  Company Number: US-JNJFOC-20140404455

PATIENT
  Age: 16 Year
  Sex: Female
  Weight: 64.6 kg

DRUGS (6)
  1. REMICADE [Suspect]
     Indication: CROHN^S DISEASE
     Route: 042
  2. NORCO [Concomitant]
     Route: 065
  3. ZOFRAN [Concomitant]
     Route: 065
  4. CELEXA [Concomitant]
     Route: 065
  5. ROMIPLOSTIM [Concomitant]
     Route: 065
  6. VANCOMYCIN [Concomitant]
     Route: 065

REACTIONS (4)
  - Cyst [Recovered/Resolved]
  - Crohn^s disease [Recovered/Resolved]
  - Urinary tract infection [Recovered/Resolved]
  - Drug hypersensitivity [Recovered/Resolved]
